FAERS Safety Report 23594491 (Version 2)
Quarter: 2024Q2

REPORT INFORMATION
  Report Type: Spontaneous
  Country: US (occurrence: US)
  Receive Date: 20240305
  Receipt Date: 20240506
  Transmission Date: 20240716
  Serious: No
  Sender: FDA-Public Use
  Company Number: US-VIIV HEALTHCARE LIMITED-US2024024320

PATIENT
  Age: 52 Year
  Sex: Male

DRUGS (2)
  1. RILPIVIRINE [Suspect]
     Active Substance: RILPIVIRINE
     Indication: HIV infection
     Dosage: UNK UNK, Q2M, 600-900 MG INJECTION
     Route: 065
     Dates: start: 202310, end: 20240108
  2. CABOTEGRAVIR [Suspect]
     Active Substance: CABOTEGRAVIR
     Indication: HIV infection
     Dosage: UNK UNK, Q2M, 600-900 MG INJECTION
     Route: 065
     Dates: start: 202310, end: 20240108

REACTIONS (4)
  - Pathogen resistance [Unknown]
  - Blood HIV RNA increased [Unknown]
  - Viral mutation identified [Unknown]
  - Product use in unapproved therapeutic environment [Unknown]

NARRATIVE: CASE EVENT DATE: 20240101
